FAERS Safety Report 9368358 (Version 1)
Quarter: 2013Q2

REPORT INFORMATION
  Report Type: Spontaneous
  Country: US (occurrence: US)
  Receive Date: 20130625
  Receipt Date: 20130625
  Transmission Date: 20140414
  Serious: No
  Sender: FDA-Public Use
  Company Number: US-ASTELLAS-2012US012512

PATIENT
  Sex: Female

DRUGS (1)
  1. VESICARE [Suspect]
     Indication: BLADDER SPASM
     Dosage: 5 MG, UNKNOWN/D
     Route: 048
     Dates: start: 201212

REACTIONS (3)
  - Drug ineffective [Unknown]
  - Dry mouth [Unknown]
  - Urinary tract infection [Unknown]
